FAERS Safety Report 5017491-8 (Version None)
Quarter: 2006Q2

REPORT INFORMATION
  Report Type: 
  Country: None (occurrence: None)
  Receive Date: 20060525
  Receipt Date: 20060501
  Transmission Date: 20061013
  Serious: Yes (Hospitalization, Other)
  Sender: FDA-Public Use
  Company Number: US200605000383

PATIENT
  Age: 51 Year
  Sex: Female
  Weight: 172.8 kg

DRUGS (10)
  1. HUMULIN 70/30 [Suspect]
     Indication: DIABETES MELLITUS
     Dosage: SEE IMAGE
     Dates: start: 19940101
  2. HUMULIN 70/30 [Suspect]
     Indication: DIABETES MELLITUS
     Dosage: SEE IMAGE
     Dates: start: 19940101
  3. HUMULIN 70/30 [Suspect]
  4. HUMULIN 70/30 [Suspect]
  5. HUMULIN 70/30 [Suspect]
  6. HUMULIN 70/30 [Suspect]
  7. HUMULIN 70/30 [Suspect]
  8. HUMULIN 70/30 [Suspect]
  9. HUMULIN 70/30 [Suspect]
  10. HUMULIN 70/30 [Suspect]

REACTIONS (14)
  - ASTHMA [None]
  - BLOOD GLUCOSE DECREASED [None]
  - BLOOD GLUCOSE INCREASED [None]
  - BRAIN NEOPLASM [None]
  - CIRCUMSTANCE OR INFORMATION CAPABLE OF LEADING TO MEDICATION ERROR [None]
  - DYSARTHRIA [None]
  - INJECTION SITE PAIN [None]
  - LOSS OF CONSCIOUSNESS [None]
  - NASOPHARYNGITIS [None]
  - PHARMACEUTICAL PRODUCT COMPLAINT [None]
  - POOR QUALITY DRUG ADMINISTERED [None]
  - SLEEP APNOEA SYNDROME [None]
  - VISUAL DISTURBANCE [None]
  - WEIGHT DECREASED [None]
